FAERS Safety Report 8487025-4 (Version None)
Quarter: 2012Q3

REPORT INFORMATION
  Report Type: 
  Country: None (occurrence: None)
  Receive Date: 20120704
  Receipt Date: 20120629
  Transmission Date: 20120928
  Serious: Yes (Other)
  Sender: FDA-Public Use
  Company Number: PHHY2012JP056007

PATIENT
  Age: 52 Year
  Sex: Male

DRUGS (7)
  1. BASILIXIMAB [Suspect]
     Indication: RENAL TRANSPLANT
  2. MYCOPHENOLATE MOFETIL [Concomitant]
     Indication: RENAL TRANSPLANT
  3. METHYLPREDNISOLONE [Concomitant]
     Indication: RENAL TRANSPLANT
     Dosage: 500 MG, UNK
  4. TACROLIMUS [Concomitant]
     Indication: RENAL TRANSPLANT
  5. IMMUNE GLOBULIN NOS [Concomitant]
     Indication: RENAL TRANSPLANT
     Dosage: 5 G, UNK
     Route: 042
  6. METHYLPREDNISOLONE [Concomitant]
     Dosage: 4 MG, UNK
  7. RITUXIMAB [Concomitant]
     Indication: RENAL TRANSPLANT
     Dosage: 70-500 MG

REACTIONS (3)
  - CHRONIC ALLOGRAFT NEPHROPATHY [None]
  - GLOMERULONEPHRITIS [None]
  - CAPILLARITIS [None]
